FAERS Safety Report 8459971-9 (Version None)
Quarter: 2012Q2

REPORT INFORMATION
  Report Type: 
  Country: None (occurrence: None)
  Receive Date: 20120622
  Receipt Date: 20120618
  Transmission Date: 20120825
  Serious: Yes (Hospitalization)
  Sender: FDA-Public Use
  Company Number: GR-AMGEN-GRCCT2012017367

PATIENT
  Age: 64 Year
  Sex: Female
  Weight: 72 kg

DRUGS (12)
  1. DEXAMETHASONE [Concomitant]
     Indication: PREMEDICATION
     Dosage: 4 MG, UNK
     Route: 042
     Dates: start: 20110926, end: 20120130
  2. PANITUMUMAB [Suspect]
     Indication: COLORECTAL CANCER METASTATIC
     Dosage: 9 MG/KG, Q3WK
     Route: 042
     Dates: start: 20110926, end: 20120130
  3. CAPECITABINE [Concomitant]
     Indication: COLORECTAL CANCER METASTATIC
     Dosage: 2000 MG/M2, Q3WK
     Dates: start: 20110926, end: 20120212
  4. ELOXATIN [Concomitant]
     Indication: COLORECTAL CANCER METASTATIC
     Dosage: 130 MG/M2, Q3WK
     Route: 042
     Dates: start: 20110926, end: 20120212
  5. TENORMIN [Concomitant]
     Indication: HYPERTENSION
     Dosage: 50 MG, BID
  6. DIGOXIN [Concomitant]
     Indication: ATRIAL FIBRILLATION
     Dosage: 0.5 MG, UNK
     Route: 048
  7. ARIXTRA [Concomitant]
     Indication: ATRIAL FIBRILLATION
     Dosage: 2.5 MG, BID
     Dates: start: 20110926, end: 20120305
  8. ZOFRAN [Concomitant]
     Indication: PREMEDICATION
     Dosage: 8 MG, UNK
     Route: 042
     Dates: start: 20110926, end: 20120130
  9. FENISTIL [Concomitant]
     Indication: PREMEDICATION
     Dosage: 8 MG, UNK
     Route: 042
     Dates: start: 20110926, end: 20120130
  10. COZAAR [Concomitant]
     Indication: HYPERTENSION
     Dosage: 50 MG, UNK
     Route: 048
     Dates: end: 20120217
  11. ZANTAC [Concomitant]
     Indication: PREMEDICATION
     Dosage: 50 MG, UNK
     Route: 042
     Dates: start: 20110926, end: 20120130
  12. DIAMICRON [Concomitant]
     Indication: HYPERGLYCAEMIA
     Dosage: UNK
     Route: 048
     Dates: start: 20111104, end: 20120217

REACTIONS (2)
  - LUNG INFECTION [None]
  - THROMBOCYTOPENIA [None]
